FAERS Safety Report 8925431 (Version 1)
Quarter: 2012Q4

REPORT INFORMATION
  Report Type: Spontaneous
  Country: US (occurrence: None)
  Receive Date: 20121126
  Receipt Date: 20121126
  Transmission Date: 20130627
  Serious: Yes (Other)
  Sender: FDA-Public Use
  Company Number: None

PATIENT
  Sex: Female
  Weight: 39.01 kg

DRUGS (5)
  1. FORTEO 20MCG LILLY [Suspect]
     Indication: OSTEOPOROSIS
     Dosage: 1 dose daily
     Dates: start: 20120202, end: 20121119
  2. KEPPRA [Concomitant]
  3. CALCIUM CITRATE [Concomitant]
  4. MULTIVITAMIN [Concomitant]
  5. LUNESTA [Concomitant]

REACTIONS (2)
  - Back pain [None]
  - Mood altered [None]
